FAERS Safety Report 17268927 (Version 2)
Quarter: 2020Q1

REPORT INFORMATION
  Report Type: Spontaneous
  Country: GB (occurrence: GB)
  Receive Date: 20200114
  Receipt Date: 20200123
  Transmission Date: 20200409
  Serious: Yes (Other)
  Sender: FDA-Public Use
  Company Number: GB-ASTRAZENECA-2020SE04178

PATIENT
  Age: 70 Year
  Sex: Male

DRUGS (5)
  1. GEFITINIB. [Suspect]
     Active Substance: GEFITINIB
     Dosage: UNKNOWN
     Route: 048
     Dates: start: 20160414, end: 20181024
  2. TINZAPARIN [Concomitant]
     Active Substance: TINZAPARIN
     Route: 058
     Dates: start: 20190501
  3. DOXAZOSIN [Concomitant]
     Active Substance: DOXAZOSIN MESYLATE
     Indication: HYPERTENSION
     Route: 048
  4. TAGRISSO [Suspect]
     Active Substance: OSIMERTINIB
     Indication: NON-SMALL CELL LUNG CANCER
     Route: 048
     Dates: start: 20181114, end: 20191207
  5. TAGRISSO [Suspect]
     Active Substance: OSIMERTINIB
     Indication: LUNG NEOPLASM MALIGNANT
     Route: 048
     Dates: start: 20181114, end: 20191207

REACTIONS (5)
  - Ventricular extrasystoles [Unknown]
  - Ejection fraction decreased [Not Recovered/Not Resolved]
  - Acute kidney injury [Recovered/Resolved]
  - Pulmonary embolism [Unknown]
  - Pericardial effusion [Unknown]

NARRATIVE: CASE EVENT DATE: 201904
